FAERS Safety Report 17680956 (Version 1)
Quarter: 2020Q2

REPORT INFORMATION
  Report Type: Spontaneous
  Country: SE (occurrence: SE)
  Receive Date: 20200417
  Receipt Date: 20200417
  Transmission Date: 20200714
  Serious: Yes (Death)
  Sender: FDA-Public Use
  Company Number: SE-MYLANLABS-2020M1038777

PATIENT
  Age: 39 Year
  Sex: Female

DRUGS (6)
  1. PALIPERIDONE. [Suspect]
     Active Substance: PALIPERIDONE
     Dosage: 150 MILLIGRAM, MONTHLY
     Dates: start: 201305
  2. THERALEN [Concomitant]
     Active Substance: TRIMEPRAZINE
     Dosage: ^UNDER VISSA PERIODER^.  OK?ND TERAPI/DOSERINGSREGIM.
  3. LEVAXIN [Concomitant]
     Active Substance: LEVOTHYROXINE SODIUM
     Dosage: UNK
     Dates: start: 2013
  4. ARIPIPRAZOLE. [Suspect]
     Active Substance: ARIPIPRAZOLE
     Indication: PSYCHOTIC DISORDER
     Dosage: 10 MILLIGRAM (^10 MG/DAG^  )
     Dates: start: 201305
  5. PROPIOMAZINE [Concomitant]
     Active Substance: PROPIOMAZINE
     Dosage: ^TILL NATTEN^
  6. PALIPERIDONE. [Suspect]
     Active Substance: PALIPERIDONE
     Indication: PSYCHOTIC DISORDER
     Dosage: 100 MILLIGRAM, MONTHLY ^100 MG /VAR 4:E VECKA^
     Dates: start: 201109, end: 201305

REACTIONS (1)
  - Cardiomyopathy [Fatal]

NARRATIVE: CASE EVENT DATE: 2019
